FAERS Safety Report 7432206-1 (Version None)
Quarter: 2011Q2

REPORT INFORMATION
  Report Type: 
  Country: None (occurrence: None)
  Receive Date: 20110422
  Receipt Date: 20110406
  Transmission Date: 20111010
  Serious: No
  Sender: FDA-Public Use
  Company Number: US-B.I. PHARMACEUTICALS,INC./RIDGEFIELD-2011-BP-10175BP

PATIENT
  Sex: Female

DRUGS (17)
  1. ALBUTEROL [Concomitant]
     Dosage: 15 MG
     Route: 048
  2. PRADAXA [Suspect]
     Indication: ATRIAL FIBRILLATION
     Dosage: 300 MG
     Route: 048
     Dates: start: 20110307
  3. ALDACTONE [Concomitant]
     Indication: FLUID RETENTION
     Dosage: 200 MG
     Route: 048
  4. NEURONTIN [Concomitant]
     Dosage: 15 MG
     Route: 048
  5. SINGULAIR [Concomitant]
     Indication: ASTHMA
     Route: 048
  6. ALBUTEROL [Concomitant]
     Indication: ASTHMA
     Route: 048
  7. MVI/SUPPLEMENTS [Concomitant]
     Dosage: 15 MG
     Route: 048
  8. K-DUR [Concomitant]
     Indication: PROPHYLAXIS
     Route: 048
  9. MG [Concomitant]
     Indication: GITELMAN'S SYNDROME
     Dosage: 8 G
     Route: 042
  10. ALDACTONE [Concomitant]
     Dosage: 15 MG
     Route: 048
  11. K-DUR [Concomitant]
     Dosage: 15 MG
     Route: 048
  12. SINGULAIR [Concomitant]
     Dosage: 15 MG
     Route: 048
  13. MG [Concomitant]
     Dosage: 15 MG
     Route: 048
  14. MVI/SUPPLEMENTS [Concomitant]
     Indication: PROPHYLAXIS
     Route: 048
  15. DIOVAN [Concomitant]
  16. DIOVAN [Concomitant]
     Dosage: 15 MG
     Route: 048
  17. NEURONTIN [Concomitant]
     Indication: NERVOUS SYSTEM DISORDER
     Dosage: 2000 MG
     Route: 048

REACTIONS (2)
  - NASOPHARYNGITIS [None]
  - BRONCHITIS [None]
